FAERS Safety Report 9344317 (Version 1)
Quarter: 2013Q2

REPORT INFORMATION
  Report Type: Not Available
  Country: GB (occurrence: GB)
  Receive Date: 20130612
  Receipt Date: 20130612
  Transmission Date: 20140414
  Serious: Yes (Other)
  Sender: FDA-Public Use
  Company Number: GB-ASTELLAS-2013EU004794

PATIENT
  Age: 57 Year
  Sex: Female

DRUGS (3)
  1. MIRABEGRON [Suspect]
     Indication: URINARY INCONTINENCE
     Dosage: 50 MG, UNKNOWN/D
     Route: 048
     Dates: start: 20120430, end: 20120515
  2. MIRABEGRON [Suspect]
     Indication: HYPERTONIC BLADDER
  3. MST CONTINUS [Concomitant]
     Dosage: UNK
     Route: 065

REACTIONS (4)
  - Photopsia [Unknown]
  - Headache [Unknown]
  - Migraine with aura [Recovering/Resolving]
  - Visual impairment [Unknown]
